FAERS Safety Report 20137757 (Version 3)
Quarter: 2021Q4

REPORT INFORMATION
  Report Type: Report from Study
  Country: KR (occurrence: KR)
  Receive Date: 20211202
  Receipt Date: 20211220
  Transmission Date: 20220303
  Serious: Yes (Hospitalization, Other)
  Sender: FDA-Public Use
  Company Number: KR-BAYER-2021A257590

PATIENT

DRUGS (18)
  1. EYLEA [Suspect]
     Active Substance: AFLIBERCEPT
     Indication: Diabetic retinal oedema
     Dosage: RIGHT EYE, ONCE
     Route: 031
     Dates: start: 20211112, end: 20211112
  2. COSAROTAN PLUS [Concomitant]
     Indication: Hypertension
     Dosage: 1 DF, QD
     Route: 048
     Dates: start: 2019
  3. GLIMEPIRIDE\METFORMIN [Concomitant]
     Active Substance: GLIMEPIRIDE\METFORMIN
     Indication: Diabetes mellitus
     Dosage: 1.5 DF, QD
     Route: 048
     Dates: start: 2019, end: 20211117
  4. GLIMEPIRIDE\METFORMIN [Concomitant]
     Active Substance: GLIMEPIRIDE\METFORMIN
     Dosage: 1 DF, QD
     Route: 048
     Dates: start: 20211118
  5. PIOGLITAZONE HYDROCHLORIDE [Concomitant]
     Active Substance: PIOGLITAZONE HYDROCHLORIDE
     Indication: Diabetes mellitus
     Dosage: 1 DF, QD
     Route: 048
     Dates: start: 2019
  6. FENOFIBRATE [Concomitant]
     Active Substance: FENOFIBRATE
     Indication: Dyslipidaemia
     Dosage: 1 DF, QD
     Route: 048
     Dates: start: 2019
  7. INDOCYANINE GREEN [Concomitant]
     Active Substance: INDOCYANINE GREEN
     Indication: Ophthalmological examination
     Dosage: 25 MG, QD
     Route: 042
     Dates: start: 20211118, end: 20211118
  8. EPINEPHRINE HYDROCHLORIDE [Concomitant]
     Active Substance: EPINEPHRINE HYDROCHLORIDE
     Indication: Anaesthesia
     Dosage: 1 MG, QD
     Route: 042
     Dates: start: 20211118, end: 20211118
  9. PLASMA SOLUTION A [Concomitant]
     Indication: Fluid replacement
     Dosage: 500 ML, QD
     Dates: start: 20211118, end: 20211118
  10. SODIUM HYALURONATE [Concomitant]
     Active Substance: HYALURONATE SODIUM
     Indication: Cataract operation
     Dosage: 12.75 MG, QD
     Route: 031
     Dates: start: 20211118, end: 20211118
  11. CEFOTETAN DISODIUM [Concomitant]
     Active Substance: CEFOTETAN DISODIUM
     Indication: Infection prophylaxis
     Dosage: 1 G, QD
     Route: 042
     Dates: start: 20211118, end: 20211118
  12. TROPHERINE [Concomitant]
     Indication: Ophthalmological examination
     Dosage: UNK UNK, PRN
     Route: 031
     Dates: start: 20211118, end: 20211118
  13. TROPHERINE [Concomitant]
     Indication: Eye operation
     Dosage: UNK
     Route: 031
     Dates: start: 20211118, end: 20211118
  14. MOXIFLOXACIN HYDROCHLORIDE [Concomitant]
     Active Substance: MOXIFLOXACIN HYDROCHLORIDE
     Indication: Infection prophylaxis
     Dosage: UNK, PRN
     Route: 031
     Dates: start: 20211118
  15. PREDNISOLONE ACETATE [Concomitant]
     Active Substance: PREDNISOLONE ACETATE
     Indication: Infection prophylaxis
     Dosage: UNK, PRN
     Route: 031
     Dates: start: 20211118
  16. LEVOFLOXACIN [Concomitant]
     Active Substance: LEVOFLOXACIN
     Indication: Infection prophylaxis
     Dosage: 300 MG, TID
     Route: 048
     Dates: start: 20211119, end: 20211124
  17. ZALTOPROFEN [Concomitant]
     Active Substance: ZALTOPROFEN
     Indication: Pain management
     Dosage: 240 MG, TID
     Route: 048
     Dates: start: 20211119, end: 20211124
  18. FAMOTIDINE [Concomitant]
     Active Substance: FAMOTIDINE
     Indication: Gastrointestinal disorder prophylaxis
     Dosage: 40 MG, BID
     Route: 048
     Dates: start: 20211119, end: 20211124

REACTIONS (1)
  - Anterior capsular rupture [Recovered/Resolved]

NARRATIVE: CASE EVENT DATE: 20211118
